FAERS Safety Report 4778040-2 (Version None)
Quarter: 2005Q3

REPORT INFORMATION
  Report Type: 
  Country: None (occurrence: None)
  Receive Date: 20050923
  Receipt Date: 20050923
  Transmission Date: 20060218
  Serious: Yes (Hospitalization)
  Sender: FDA-Public Use
  Company Number: None

PATIENT
  Age: 44 Year
  Sex: Male
  Weight: 69.8539 kg

DRUGS (7)
  1. OXALIPLATIN ON DAY 1 EVERY 3 WEEKS [Suspect]
     Indication: PANCREATIC CARCINOMA
     Dosage: 130 MG/M2 120 MIN IV
     Route: 042
     Dates: start: 20050414, end: 20050809
  2. CAPECITABINE 2 DIVIDED DOSES FOR 14 DAYS [Suspect]
     Indication: PANCREATIC CARCINOMA
     Dosage: 2000 MG/M2 PO QD
     Route: 048
     Dates: start: 20050414, end: 20050822
  3. PROCHLORPERAZINE [Concomitant]
  4. PANTOPRAZOLE [Concomitant]
  5. METOCLOPROMIDE [Concomitant]
  6. POLYETHYLENE GLYCOL [Concomitant]
  7. ACETAMINOPHEN/HYDROCODONE [Concomitant]

REACTIONS (8)
  - ABDOMINAL PAIN [None]
  - ANAEMIA [None]
  - FATIGUE [None]
  - GASTRIC NEOPLASM [None]
  - GASTROINTESTINAL HAEMORRHAGE [None]
  - MELAENA [None]
  - TACHYCARDIA [None]
  - VENTRICULAR EXTRASYSTOLES [None]
